FAERS Safety Report 8099578-9 (Version None)
Quarter: 2012Q1

REPORT INFORMATION
  Report Type: 
  Country: None (occurrence: None)
  Receive Date: 20120129
  Receipt Date: 20110906
  Transmission Date: 20120608
  Serious: No
  Sender: FDA-Public Use
  Company Number: US-ABBOTT-11P-163-0852005-00

PATIENT
  Age: 32 Year
  Sex: Female

DRUGS (1)
  1. HUMIRA [Suspect]
     Indication: JUVENILE ARTHRITIS
     Dates: start: 20110831

REACTIONS (5)
  - DYSSTASIA [None]
  - URINARY BLADDER HAEMORRHAGE [None]
  - DIZZINESS [None]
  - VAGINAL DISORDER [None]
  - MALAISE [None]
